FAERS Safety Report 10102300 (Version 2)
Quarter: 2014Q2

REPORT INFORMATION
  Report Type: Spontaneous
  Country: AT (occurrence: AT)
  Receive Date: 20140424
  Receipt Date: 20140429
  Transmission Date: 20141212
  Serious: Yes (Hospitalization)
  Sender: FDA-Public Use
  Company Number: ALCN2014AT002558

PATIENT
  Age: 73 Year
  Sex: Female

DRUGS (1)
  1. BSS PLUS [Suspect]
     Indication: VITRECTOMY
     Dosage: 1 DF, ONCE/SINGLE
     Route: 031
     Dates: start: 20140403, end: 20140403

REACTIONS (1)
  - Anterior chamber fibrin [Not Recovered/Not Resolved]
